FAERS Safety Report 14760579 (Version 1)
Quarter: 2018Q2

REPORT INFORMATION
  Report Type: Report from Study
  Country: US (occurrence: US)
  Receive Date: 20180414
  Receipt Date: 20180414
  Transmission Date: 20180711
  Serious: Yes (Death, Hospitalization)
  Sender: FDA-Public Use
  Company Number: US-JNJFOC-20180407411

PATIENT
  Age: 68 Year
  Sex: Male

DRUGS (5)
  1. TYLENOL ARTHRITIS PAIN [Suspect]
     Active Substance: ACETAMINOPHEN
     Route: 048
  2. LISINOPRIL. [Concomitant]
     Active Substance: LISINOPRIL
     Indication: HYPERTENSION
     Route: 065
  3. IBUPROFEN. [Concomitant]
     Active Substance: IBUPROFEN
     Indication: ARTHRITIS
     Route: 065
  4. BENADRYL [Suspect]
     Active Substance: DIPHENHYDRAMINE HYDROCHLORIDE
     Indication: SUICIDE ATTEMPT
     Route: 048
  5. TYLENOL ARTHRITIS PAIN [Suspect]
     Active Substance: ACETAMINOPHEN
     Indication: SUICIDE ATTEMPT
     Route: 048

REACTIONS (10)
  - Tracheal haemorrhage [Fatal]
  - International normalised ratio increased [Fatal]
  - Blood bicarbonate decreased [Fatal]
  - Gastrointestinal haemorrhage [Fatal]
  - Blood creatinine increased [Fatal]
  - Blood urea increased [Fatal]
  - Platelet count decreased [Fatal]
  - Intentional overdose [Fatal]
  - Transaminases increased [Fatal]
  - Hypotension [Fatal]
